FAERS Safety Report 6147119-5 (Version None)
Quarter: 2009Q2

REPORT INFORMATION
  Report Type: 
  Country: None (occurrence: None)
  Receive Date: 20090403
  Receipt Date: 20090326
  Transmission Date: 20091009
  Serious: Yes (Hospitalization)
  Sender: FDA-Public Use
  Company Number: 2009AL001797

PATIENT
  Age: 34 Year
  Sex: Female

DRUGS (2)
  1. CARBAMAZEPINE [Suspect]
     Indication: CONVULSION PROPHYLAXIS
  2. CARBAMAZEPINE [Suspect]
     Indication: POSTOPERATIVE CARE

REACTIONS (10)
  - BLOOD CREATINE PHOSPHOKINASE MB INCREASED [None]
  - BODY TEMPERATURE INCREASED [None]
  - CHEILITIS [None]
  - CHILLS [None]
  - DERMATITIS [None]
  - LYMPHADENOPATHY [None]
  - PERIORBITAL OEDEMA [None]
  - RASH GENERALISED [None]
  - RASH MACULO-PAPULAR [None]
  - RASH PRURITIC [None]
